FAERS Safety Report 24761336 (Version 2)
Quarter: 2025Q1

REPORT INFORMATION
  Report Type: Report from Study
  Country: US (occurrence: US)
  Receive Date: 20241220
  Receipt Date: 20250305
  Transmission Date: 20250409
  Serious: Yes (Hospitalization)
  Sender: EISAI
  Company Number: US-Eisai-EC-2024-180969

PATIENT
  Age: 67 Year
  Sex: Male
  Weight: 81.6 kg

DRUGS (26)
  1. LENVIMA [Suspect]
     Active Substance: LENVATINIB
     Indication: Renal cancer
     Dates: start: 20241129, end: 202412
  2. LENVIMA [Suspect]
     Active Substance: LENVATINIB
     Dates: start: 202412, end: 202502
  3. EVEROLIMUS [Concomitant]
     Active Substance: EVEROLIMUS
  4. CORTEF [Concomitant]
     Active Substance: HYDROCORTISONE
  5. FLEXERIL [Concomitant]
     Active Substance: CYCLOBENZAPRINE HYDROCHLORIDE
  6. DEXAMETHASONE [Concomitant]
     Active Substance: DEXAMETHASONE
  7. ELIQUIS [Concomitant]
     Active Substance: APIXABAN
  8. ENTOCORT EC [Concomitant]
     Active Substance: BUDESONIDE
  9. ENTRESTO [Concomitant]
     Active Substance: SACUBITRIL\VALSARTAN
  10. JARDIANCE [Concomitant]
     Active Substance: EMPAGLIFLOZIN
  11. LASIX [Concomitant]
     Active Substance: FUROSEMIDE
  12. LEVOTHYROXINE [Concomitant]
     Active Substance: LEVOTHYROXINE
  13. LIDOCAINE [Concomitant]
     Active Substance: LIDOCAINE
  14. LOSARTAN [Concomitant]
     Active Substance: LOSARTAN
  15. LORAZEPAM [Concomitant]
     Active Substance: LORAZEPAM
  16. METOPROLOL SUCCINATE [Concomitant]
     Active Substance: METOPROLOL SUCCINATE
  17. MIRAPEX [Concomitant]
     Active Substance: PRAMIPEXOLE DIHYDROCHLORIDE
  18. NALOXONE [Concomitant]
     Active Substance: NALOXONE
  19. ZOFRAN [Concomitant]
     Active Substance: ONDANSETRON HYDROCHLORIDE
  20. OXYCODONE [Concomitant]
     Active Substance: OXYCODONE
  21. PANTOPRAZOLE [Concomitant]
     Active Substance: PANTOPRAZOLE
  22. SENNA S [Concomitant]
     Active Substance: DOCUSATE SODIUM\SENNOSIDES
  23. SIMVASTATIN [Concomitant]
     Active Substance: SIMVASTATIN
  24. TAMSULOSIN [Concomitant]
     Active Substance: TAMSULOSIN
  25. THIAMINE [Concomitant]
     Active Substance: THIAMINE
  26. VITAMIN B12 [Concomitant]
     Active Substance: CYANOCOBALAMIN

REACTIONS (1)
  - Asthenia [Unknown]

NARRATIVE: CASE EVENT DATE: 20241209
